FAERS Safety Report 19618551 (Version 2)
Quarter: 2021Q4

REPORT INFORMATION
  Report Type: Spontaneous
  Country: US (occurrence: None)
  Receive Date: 20210727
  Receipt Date: 20211231
  Transmission Date: 20220303
  Serious: Yes (Other)
  Sender: FDA-Public Use
  Company Number: US-ROCHE-2816867

PATIENT
  Sex: Female

DRUGS (2)
  1. XELODA [Suspect]
     Active Substance: CAPECITABINE
     Indication: Product used for unknown indication
     Dosage: ONE TAB IN MORNING AND ONE AT NIGHT
     Route: 048
  2. TUKYSA [Suspect]
     Active Substance: TUCATINIB
     Indication: Breast cancer female
     Dosage: ONE TAB IN MORNING AND ONE AT NIGHT
     Route: 065

REACTIONS (12)
  - Arthralgia [Unknown]
  - Neck pain [Unknown]
  - Nausea [Unknown]
  - Decreased appetite [Unknown]
  - Inappropriate schedule of product administration [Unknown]
  - Vomiting [Unknown]
  - Back pain [Unknown]
  - Blood pressure fluctuation [Unknown]
  - Burning sensation [Unknown]
  - Panic attack [Unknown]
  - Gastric disorder [Unknown]
  - Thrombosis [Recovering/Resolving]
